FAERS Safety Report 5440591-5 (Version None)
Quarter: 2007Q3

REPORT INFORMATION
  Report Type: 
  Country: None (occurrence: None)
  Receive Date: 20070831
  Receipt Date: 20070824
  Transmission Date: 20080115
  Serious: Yes (Hospitalization, Other)
  Sender: FDA-Public Use
  Company Number: JP-ABBOTT-07P-087-0414896-00

PATIENT
  Age: 57 Year
  Sex: Female
  Weight: 41 kg

DRUGS (12)
  1. CLARITHROMYCIN [Suspect]
     Indication: ATYPICAL MYCOBACTERIAL INFECTION
     Route: 048
     Dates: start: 20060301, end: 20060317
  2. CLARITHROMYCIN [Suspect]
     Route: 048
     Dates: start: 20060927
  3. RIFAMPICIN [Suspect]
     Indication: ATYPICAL MYCOBACTERIAL INFECTION
     Route: 048
     Dates: start: 20060301, end: 20060317
  4. RIFAMPICIN [Suspect]
     Dates: start: 20060901
  5. REBAMIPIDE [Concomitant]
     Indication: PROPHYLAXIS AGAINST GASTROINTESTINAL ULCER
     Route: 048
     Dates: start: 20060301, end: 20060317
  6. REBAMIPIDE [Concomitant]
     Route: 048
     Dates: start: 20060927
  7. CLOSTRIDIUM BUTYRICUM [Concomitant]
     Indication: PROPHYLAXIS
     Route: 048
     Dates: start: 20060301, end: 20060317
  8. CLOSTRIDIUM BUTYRICUM [Concomitant]
     Route: 048
     Dates: start: 20060927
  9. ETHAMBUTOL HYDROCHLORIDE [Concomitant]
     Indication: ATYPICAL MYCOBACTERIAL INFECTION
     Route: 048
     Dates: start: 20060301, end: 20060317
  10. ETHAMBUTOL HYDROCHLORIDE [Concomitant]
     Route: 048
     Dates: start: 20061025
  11. STREPTOMYCIN SULFATE [Concomitant]
     Indication: ATYPICAL MYCOBACTERIAL INFECTION
     Route: 030
     Dates: start: 20060228, end: 20060317
  12. STREPTOMYCIN SULFATE [Concomitant]
     Route: 030
     Dates: start: 20060926, end: 20061128

REACTIONS (4)
  - ANIMAL BITE [None]
  - ATYPICAL MYCOBACTERIAL INFECTION [None]
  - COAGULOPATHY [None]
  - THROMBOCYTOPENIA [None]
